FAERS Safety Report 9109477 (Version 2)
Quarter: 2013Q1

REPORT INFORMATION
  Report Type: Spontaneous
  Country: CN (occurrence: CN)
  Receive Date: 20130222
  Receipt Date: 20130226
  Transmission Date: 20140127
  Serious: Yes (Hospitalization)
  Sender: FDA-Public Use
  Company Number: PHHY2013CN017162

PATIENT
  Age: 50 Year
  Sex: Male

DRUGS (2)
  1. GLIVEC [Suspect]
     Indication: GASTROINTESTINAL STROMAL TUMOUR
     Dosage: 4 DF PER DAY
     Route: 048
  2. ENTECAVIR [Concomitant]
     Indication: HEPATITIS B
     Dosage: UNK UKN, UNK

REACTIONS (2)
  - Renal cancer [Recovered/Resolved]
  - Second primary malignancy [Recovered/Resolved]
